FAERS Safety Report 5164425-1 (Version None)
Quarter: 2006Q4

REPORT INFORMATION
  Report Type: 
  Country: None (occurrence: None)
  Receive Date: 20061205
  Receipt Date: 20061122
  Transmission Date: 20070319
  Serious: Yes (Hospitalization, Other)
  Sender: FDA-Public Use
  Company Number: US-NOVOPROD-258752

PATIENT
  Age: 43 Year
  Sex: Male
  Weight: 76.644 kg

DRUGS (1)
  1. NOVOLOG MIX 70/30 [Suspect]
     Indication: DIABETES MELLITUS INSULIN-DEPENDENT
     Dosage: 20 IU, QD
     Route: 058
     Dates: start: 20061120, end: 20061121

REACTIONS (3)
  - BURNING SENSATION [None]
  - PARAESTHESIA ORAL [None]
  - URTICARIA [None]
